FAERS Safety Report 13650663 (Version 1)
Quarter: 2017Q2

REPORT INFORMATION
  Report Type: Spontaneous
  Country: GB (occurrence: GB)
  Receive Date: 20170614
  Receipt Date: 20170614
  Transmission Date: 20170830
  Serious: Yes (Disabling)
  Sender: FDA-Public Use
  Company Number: GB-TEVA-777229ACC

PATIENT
  Age: 42 Year
  Sex: Female

DRUGS (4)
  1. ST JOHNS WORT [Concomitant]
     Active Substance: ST. JOHN^S WORT
  2. BISOPROLOL FUMARATE. [Suspect]
     Active Substance: BISOPROLOL FUMARATE
     Indication: EXTRASYSTOLES
     Dosage: 5 - 10 MG
     Route: 048
  3. ZOPICLONE [Concomitant]
     Active Substance: ZOPICLONE
  4. LEVOTHYROXINE. [Concomitant]
     Active Substance: LEVOTHYROXINE

REACTIONS (11)
  - Head discomfort [Not Recovered/Not Resolved]
  - Abdominal discomfort [Not Recovered/Not Resolved]
  - Fatigue [Not Recovered/Not Resolved]
  - Paraesthesia [Not Recovered/Not Resolved]
  - Anal incontinence [Not Recovered/Not Resolved]
  - Nervous system disorder [Unknown]
  - Joint swelling [Not Recovered/Not Resolved]
  - Abnormal weight gain [Not Recovered/Not Resolved]
  - Chest discomfort [Unknown]
  - Extrasystoles [Unknown]
  - Incorrect dose administered [Unknown]
